FAERS Safety Report 8371558-5 (Version None)
Quarter: 2012Q2

REPORT INFORMATION
  Report Type: 
  Country: None (occurrence: None)
  Receive Date: 20120518
  Receipt Date: 20120516
  Transmission Date: 20120825
  Serious: Yes (Death)
  Sender: FDA-Public Use
  Company Number: AU-B.I. PHARMACEUTICALS,INC./RIDGEFIELD-2012-AU-00694AU

PATIENT
  Sex: Female

DRUGS (2)
  1. PRADAXA [Suspect]
     Indication: CEREBROVASCULAR ACCIDENT PROPHYLAXIS
     Dosage: 220 MG
     Dates: end: 20120201
  2. PRADAXA [Suspect]
     Dosage: 110 MG

REACTIONS (3)
  - RENAL IMPAIRMENT [None]
  - WEIGHT DECREASED [None]
  - MALIGNANT PERITONEAL NEOPLASM [None]
